FAERS Safety Report 5005185-4 (Version None)
Quarter: 2006Q2

REPORT INFORMATION
  Report Type: 
  Country: None (occurrence: None)
  Receive Date: 20060518
  Receipt Date: 20060516
  Transmission Date: 20061013
  Serious: Yes (Death)
  Sender: FDA-Public Use
  Company Number: 2006CG00871

PATIENT
  Age: 80 Year
  Sex: Female

DRUGS (10)
  1. ATACAND [Suspect]
     Route: 048
     Dates: start: 20040615, end: 20060312
  2. ATACAND [Suspect]
     Route: 048
     Dates: start: 20060313
  3. CARDENSIEL [Suspect]
     Route: 048
     Dates: start: 20040615, end: 20060312
  4. CARDENSIEL [Suspect]
     Route: 048
     Dates: start: 20060313
  5. TRINIPATCH [Concomitant]
  6. MODOPAR [Concomitant]
  7. INSULATARD NPH HUMAN [Concomitant]
  8. SINEMET [Concomitant]
  9. TARDYFERON [Concomitant]
  10. SPECIAFOLDINE [Concomitant]

REACTIONS (2)
  - DIABETES MELLITUS INADEQUATE CONTROL [None]
  - RENAL FAILURE ACUTE [None]
